FAERS Safety Report 8539908-4 (Version None)
Quarter: 2012Q3

REPORT INFORMATION
  Report Type: 
  Country: None (occurrence: None)
  Receive Date: 20120726
  Receipt Date: 20120717
  Transmission Date: 20120928
  Serious: Yes (Disabling, Other)
  Sender: FDA-Public Use
  Company Number: US-009507513-1207USA007199

PATIENT

DRUGS (5)
  1. FOSAMAX [Suspect]
     Indication: OSTEOPOROSIS
     Dosage: UNK
     Route: 048
     Dates: start: 20050101, end: 20100101
  2. FOSAMAX [Suspect]
     Route: 048
  3. FOSAMAX PLUS D [Suspect]
     Indication: OSTEOPOROSIS
     Route: 048
  4. BONIVA [Suspect]
     Indication: OSTEOPOROSIS
  5. ACTONEL [Suspect]
     Indication: OSTEOPOROSIS

REACTIONS (3)
  - FEMUR FRACTURE [None]
  - BONE DISORDER [None]
  - LOW TURNOVER OSTEOPATHY [None]
